FAERS Safety Report 5427405-4 (Version None)
Quarter: 2007Q3

REPORT INFORMATION
  Report Type: 
  Country: None (occurrence: None)
  Receive Date: 20070824
  Receipt Date: 20070824
  Transmission Date: 20080115
  Serious: Yes (Other)
  Sender: FDA-Public Use
  Company Number: None

PATIENT
  Age: 42 Year
  Sex: Female
  Weight: 60.782 kg

DRUGS (2)
  1. SULFAMETHOXAZOLE [Suspect]
     Indication: EAR DISORDER
     Dosage: 2 DAILY PO
     Route: 048
     Dates: start: 20070808, end: 20070817
  2. SULFAMETHOXAZOLE [Suspect]
     Indication: SINUS DISORDER
     Dosage: 2 DAILY PO
     Route: 048
     Dates: start: 20070808, end: 20070817

REACTIONS (5)
  - ARTHRALGIA [None]
  - DYSPHAGIA [None]
  - HEADACHE [None]
  - LOCAL SWELLING [None]
  - RASH [None]
